FAERS Safety Report 9413068 (Version 1)
Quarter: 2013Q3

REPORT INFORMATION
  Report Type: Spontaneous
  Country: NL (occurrence: NL)
  Receive Date: 20130722
  Receipt Date: 20130722
  Transmission Date: 20140515
  Serious: Yes (Death, Hospitalization, Other)
  Sender: FDA-Public Use
  Company Number: NL-GLAXOSMITHKLINE-B0909376A

PATIENT
  Age: 58 Year
  Sex: Female

DRUGS (11)
  1. CEFUROXIME [Suspect]
     Indication: ABSCESS
     Route: 065
  2. METRONIDAZOLE [Suspect]
     Indication: ABSCESS
     Route: 065
  3. CIPROFLOXACIN [Suspect]
     Indication: ABSCESS
     Route: 065
  4. PIPERACILLIN/TAZOBACTAM [Suspect]
     Indication: ABSCESS
     Route: 065
  5. AMOXICILLIN [Suspect]
     Indication: ABSCESS
     Route: 065
  6. VANCOMYCIN [Suspect]
     Indication: ABSCESS
     Route: 065
  7. PREDNISONE [Concomitant]
     Indication: ABSCESS
     Route: 065
  8. CLEMASTINE [Concomitant]
     Indication: ABSCESS
     Route: 065
  9. LINEZOLID [Concomitant]
     Indication: ABSCESS
     Route: 065
  10. COTRIMOXAZOLE [Concomitant]
     Indication: ABSCESS
     Route: 065
  11. HYDROCORTISONE [Concomitant]
     Indication: PRODUCT USED FOR UNKNOWN INDICATION
     Route: 065

REACTIONS (13)
  - Drug reaction with eosinophilia and systemic symptoms [Fatal]
  - Respiratory failure [Unknown]
  - Hypotension [Unknown]
  - Oliguria [Unknown]
  - Metabolic acidosis [Unknown]
  - Renal failure [Unknown]
  - Leukocytosis [Unknown]
  - Dermatitis exfoliative [Unknown]
  - Blister [Unknown]
  - Blister [Unknown]
  - Local swelling [Unknown]
  - Cerebral haemorrhage [Recovered/Resolved]
  - Coagulation time prolonged [Unknown]
